FAERS Safety Report 23257993 (Version 1)
Quarter: 2023Q4

REPORT INFORMATION
  Report Type: Spontaneous
  Country: US (occurrence: US)
  Receive Date: 20231204
  Receipt Date: 20231204
  Transmission Date: 20240109
  Serious: Yes (Other)
  Sender: FDA-Public Use
  Company Number: US-ENDO-CASE-0048273

PATIENT
  Sex: Female

DRUGS (1)
  1. PERCOCET [Suspect]
     Active Substance: ACETAMINOPHEN\OXYCODONE HYDROCHLORIDE

REACTIONS (15)
  - Vision blurred [Unknown]
  - Dependence [Unknown]
  - Depression [Unknown]
  - Dizziness [Unknown]
  - Vomiting [Unknown]
  - Mood swings [Unknown]
  - Fatigue [Unknown]
  - Sleep apnoea syndrome [Unknown]
  - Amnesia [Unknown]
  - Anxiety [Unknown]
  - Headache [Unknown]
  - Dysarthria [Unknown]
  - Withdrawal syndrome [Unknown]
  - Asthma [Unknown]
  - Confusional state [Unknown]
